FAERS Safety Report 15838725 (Version 1)
Quarter: 2019Q1

REPORT INFORMATION
  Report Type: Spontaneous
  Country: NO (occurrence: NO)
  Receive Date: 20190117
  Receipt Date: 20190117
  Transmission Date: 20190417
  Serious: Yes (Hospitalization)
  Sender: FDA-Public Use
  Company Number: NO-ASTRAZENECA-2019SE04849

PATIENT
  Age: 0 Day
  Sex: Male

DRUGS (3)
  1. LITHIONIT [Suspect]
     Active Substance: LITHIUM SULFATE
     Dosage: MOTHER USED LITHIUM 125 MG X 2 FOR BIPOLAR DISORDER IN PREGNANCY.
     Route: 064
  2. PHENERGAN [Suspect]
     Active Substance: PROMETHAZINE HYDROCHLORIDE
     Dosage: MOTHER USED 50 MG PHENERGAN IN THE EVENING DURING PREGNANCY FOR BIPOLAR DISORDER.
     Route: 064
  3. SEROQUEL [Suspect]
     Active Substance: QUETIAPINE FUMARATE
     Dosage: MOTHER USED SEROQUEL 25 + 100 MG IN PREGNANCY FOR BIPOLAR DISORDER.
     Route: 064

REACTIONS (3)
  - Hypotonia neonatal [Recovered/Resolved]
  - Meconium ileus [Recovered/Resolved]
  - Foetal exposure during pregnancy [Recovered/Resolved]

NARRATIVE: CASE EVENT DATE: 201812
